FAERS Safety Report 5866146-6 (Version None)
Quarter: 2008Q3

REPORT INFORMATION
  Report Type: 
  Country: None (occurrence: None)
  Receive Date: 20080829
  Receipt Date: 20080818
  Transmission Date: 20090109
  Serious: Yes (Life-Threatening, Hospitalization)
  Sender: FDA-Public Use
  Company Number: PL-MERCK-0808POL00013

PATIENT
  Age: 53 Year
  Sex: Male

DRUGS (9)
  1. PRIMAXIN [Suspect]
     Route: 041
  2. TOBRAMYCIN [Concomitant]
     Route: 065
  3. MEROPENEM [Concomitant]
     Route: 065
  4. CEFTAZIDIME [Concomitant]
     Route: 065
  5. COLISTIN [Concomitant]
     Route: 065
  6. CEFOTAXIME SODIUM [Concomitant]
     Route: 065
  7. CIPROFLOXACIN [Concomitant]
     Route: 065
  8. METHOTREXATE [Concomitant]
     Route: 065
  9. CORTICOSTEROIDS (UNSPECIFIED) [Concomitant]
     Route: 065

REACTIONS (5)
  - BURKHOLDERIA CEPACIA INFECTION [None]
  - DRUG RESISTANCE [None]
  - PSEUDOMONAS INFECTION [None]
  - RESPIRATORY FAILURE [None]
  - SEPTIC SHOCK [None]
